FAERS Safety Report 5450965-4 (Version None)
Quarter: 2007Q3

REPORT INFORMATION
  Report Type: 
  Country: None (occurrence: None)
  Receive Date: 20070911
  Receipt Date: 20070831
  Transmission Date: 20080115
  Serious: Yes (Hospitalization)
  Sender: FDA-Public Use
  Company Number: 2007-163685-NL

PATIENT
  Age: 36 Year
  Sex: Female

DRUGS (6)
  1. ROCURONIUM BROMIDE [Suspect]
     Dates: start: 20070305
  2. SEVOFLURANE [Suspect]
  3. FENTANYL [Suspect]
     Dosage: 50 UG ONCE/200 UG ONCE
     Dates: start: 20070305
  4. KETOROLAC [Suspect]
     Dosage: 10 MG ONCE
     Dates: start: 20070305
  5. PROPOFOL [Suspect]
     Dosage: 180 MG ONCE
     Dates: start: 20070305
  6. DOLASETRON MESILATE [Suspect]
     Dosage: 12.5 MG ONCE

REACTIONS (1)
  - MYOCLONIC EPILEPSY [None]
